FAERS Safety Report 6239823-5 (Version None)
Quarter: 2009Q2

REPORT INFORMATION
  Report Type: 
  Country: None (occurrence: None)
  Receive Date: 20090618
  Receipt Date: 20090618
  Transmission Date: 20091009
  Serious: No
  Sender: FDA-Public Use
  Company Number: None

PATIENT
  Age: 42 Year
  Sex: Female
  Weight: 61.2356 kg

DRUGS (2)
  1. ZICAM COLD REMEDY NASAL GEL ZICAM [Suspect]
     Indication: MALAISE
     Dosage: ONE PUMP INTO EACH NOSTRIL ONCE NASAL
     Route: 045
     Dates: start: 20080703, end: 20080703
  2. ZICAM COLD REMEDY NASAL GEL ZICAM [Suspect]
     Indication: NASOPHARYNGITIS
     Dosage: ONE PUMP INTO EACH NOSTRIL ONCE NASAL
     Route: 045
     Dates: start: 20080703, end: 20080703

REACTIONS (11)
  - AGEUSIA [None]
  - ANIMAL BITE [None]
  - ANOSMIA [None]
  - BLOOD PRESSURE INCREASED [None]
  - CRYING [None]
  - DERMATITIS ALLERGIC [None]
  - DRUG HYPERSENSITIVITY [None]
  - INFECTED BITES [None]
  - SINUS HEADACHE [None]
  - SINUSITIS [None]
  - VITAMIN D DECREASED [None]
